FAERS Safety Report 8231693-9 (Version None)
Quarter: 2012Q1

REPORT INFORMATION
  Report Type: 
  Country: None (occurrence: None)
  Receive Date: 20120323
  Receipt Date: 20120314
  Transmission Date: 20120608
  Serious: Yes (Hospitalization, Other)
  Sender: FDA-Public Use
  Company Number: AR-MPIJNJ-2012-01032

PATIENT

DRUGS (5)
  1. FOLIC ACID [Concomitant]
  2. VELCADE [Suspect]
     Indication: MULTIPLE MYELOMA
     Dosage: 2.3 MG, UNK
     Route: 065
     Dates: start: 20111005, end: 20111026
  3. DEXAMETHASONE [Concomitant]
     Dosage: 40 MG, UNK
  4. ALLOPURINOL [Concomitant]
  5. OMEPRAZOLE [Concomitant]

REACTIONS (1)
  - COLITIS ULCERATIVE [None]
